FAERS Safety Report 6567376-0 (Version None)
Quarter: 2010Q1

REPORT INFORMATION
  Report Type: 
  Country: None (occurrence: None)
  Receive Date: 20100202
  Receipt Date: 20100127
  Transmission Date: 20100710
  Serious: Yes (Death, Other)
  Sender: FDA-Public Use
  Company Number: PHEH2008US11651

PATIENT
  Sex: Male
  Weight: 77.098 kg

DRUGS (1)
  1. LAMISIL [Suspect]
     Indication: ONYCHOMYCOSIS
     Dosage: UNK

REACTIONS (37)
  - ACUTE MYELOID LEUKAEMIA [None]
  - ARTHRALGIA [None]
  - BLOOD COUNT ABNORMAL [None]
  - BRONCHITIS [None]
  - CHILLS [None]
  - COUGH [None]
  - DEATH [None]
  - DYSPNOEA [None]
  - EPICONDYLITIS [None]
  - FACIAL PAIN [None]
  - FATIGUE [None]
  - HAEMATOCRIT DECREASED [None]
  - HAEMOGLOBIN DECREASED [None]
  - HAEMORRHOIDS [None]
  - HEADACHE [None]
  - INCISIONAL DRAINAGE [None]
  - LIMB DISCOMFORT [None]
  - MYELODYSPLASTIC SYNDROME [None]
  - NASAL CONGESTION [None]
  - OEDEMA PERIPHERAL [None]
  - PAIN [None]
  - PHARYNGEAL ERYTHEMA [None]
  - PNEUMONIA [None]
  - PYREXIA [None]
  - RALES [None]
  - RED BLOOD CELL COUNT DECREASED [None]
  - RHINITIS [None]
  - RHINORRHOEA [None]
  - RHONCHI [None]
  - SINUS HEADACHE [None]
  - SINUSITIS BACTERIAL [None]
  - SPUTUM ABNORMAL [None]
  - THROMBOCYTOPENIA [None]
  - TYMPANIC MEMBRANE DISORDER [None]
  - UPPER RESPIRATORY TRACT INFECTION [None]
  - WHITE BLOOD CELL COUNT DECREASED [None]
  - WHITE BLOOD CELL COUNT INCREASED [None]
